FAERS Safety Report 15844011 (Version 1)
Quarter: 2019Q1

REPORT INFORMATION
  Report Type: Spontaneous
  Country: TR (occurrence: TR)
  Receive Date: 20190118
  Receipt Date: 20190118
  Transmission Date: 20190417
  Serious: Yes (Other)
  Sender: FDA-Public Use
  Company Number: PHHY2018TR196373

PATIENT
  Age: 57 Year
  Sex: Female

DRUGS (7)
  1. CYCLOPHOSPHAMIDE. [Suspect]
     Active Substance: CYCLOPHOSPHAMIDE
     Indication: PLASMA CELL MYELOMA
     Dosage: 1 MG, UNK
     Route: 042
  2. DEXAMETHASONE. [Suspect]
     Active Substance: DEXAMETHASONE
     Indication: PLASMA CELL MYELOMA
     Dosage: 20 MG, UNK
     Route: 065
  3. DEXAMETHASONE. [Interacting]
     Active Substance: DEXAMETHASONE
     Dosage: 40 MG, CYCLIC ON DAYS 1, 8, 15 AND 22 OF THE MONTH
     Route: 048
  4. CYCLOPHOSPHAMIDE. [Suspect]
     Active Substance: CYCLOPHOSPHAMIDE
     Dosage: 450 MG, CYCLIC ON DAYS 1, 8, 15 AND 22 OF THE MONTH
     Route: 065
  5. DEXAMETHASONE. [Interacting]
     Active Substance: DEXAMETHASONE
     Dosage: 450 UNK, UNK
     Route: 065
  6. BORTEZOMIB. [Interacting]
     Active Substance: BORTEZOMIB
     Indication: PLASMA CELL MYELOMA
     Dosage: 2.2 MG, UNK
     Route: 065
  7. BORTEZOMIB. [Interacting]
     Active Substance: BORTEZOMIB
     Dosage: 2.2 MG, CYCLIC ON DAYS 1, 8, 15 AND 22 OF THE MONTH
     Route: 058

REACTIONS (13)
  - Speech disorder [Recovering/Resolving]
  - Personality change [Unknown]
  - Psychomotor hyperactivity [Unknown]
  - Thinking abnormal [Unknown]
  - Drug interaction [Unknown]
  - Nervousness [Unknown]
  - Disinhibition [Unknown]
  - Drug ineffective [Unknown]
  - Sleep deficit [Recovering/Resolving]
  - Self esteem inflated [Recovering/Resolving]
  - Irritability [Unknown]
  - Frustration tolerance decreased [Unknown]
  - Mania [Recovered/Resolved]
